FAERS Safety Report 8415181-2 (Version None)
Quarter: 2012Q2

REPORT INFORMATION
  Report Type: 
  Country: None (occurrence: None)
  Receive Date: 20120606
  Receipt Date: 20120601
  Transmission Date: 20120825
  Serious: No
  Sender: FDA-Public Use
  Company Number: US-PFIZER INC-2012132711

PATIENT
  Sex: Female
  Weight: 72.562 kg

DRUGS (8)
  1. ASCORBIC ACID [Concomitant]
     Dosage: UNK
  2. CALCIUM [Concomitant]
     Dosage: UNK
  3. MULTI-VITAMINS [Concomitant]
     Dosage: UNK
  4. ACETYLSALICYLIC ACID [Concomitant]
     Indication: DIABETES MELLITUS
     Dosage: 81 MG, 1X/DAY
  5. PRISTIQ [Suspect]
     Indication: DEPRESSION
     Dosage: 100 MG, 1X/DAY
     Route: 048
  6. REQUIP [Concomitant]
     Indication: RESTLESS LEGS SYNDROME
     Dosage: 0.5 MG, 1X/DAY
     Route: 048
  7. VITAMIN D [Concomitant]
     Dosage: UNK
  8. TRAZODONE [Concomitant]
     Indication: INSOMNIA
     Dosage: 300 MG, 1X/DAY

REACTIONS (6)
  - EXPIRED DRUG ADMINISTERED [None]
  - INCREASED APPETITE [None]
  - AMYLASE INCREASED [None]
  - IRRITABILITY [None]
  - FEELING HOT [None]
  - FATIGUE [None]
